FAERS Safety Report 8916676 (Version 1)
Quarter: 2012Q4

REPORT INFORMATION
  Report Type: 
  Country: US (occurrence: US)
  Receive Date: 20121120
  Receipt Date: 20121120
  Transmission Date: 20130627
  Serious: No
  Sender: FDA-Public Use
  Company Number: US-BAYER-2012-106880

PATIENT
  Age: 61 Year
  Sex: Male

DRUGS (8)
  1. LEVITRA [Suspect]
     Indication: ERECTILE DYSFUNCTION
     Dosage: 10 mg, UNK
     Dates: start: 20120928, end: 20121010
  2. LEVITRA [Suspect]
     Indication: ERECTILE DYSFUNCTION
     Dosage: 10 mg, UNK
     Dates: start: 20120928, end: 20121010
  3. LEVITRA [Suspect]
     Indication: ERECTILE DYSFUNCTION
     Dosage: 10 mg, UNK
     Dates: start: 20121010
  4. LEVITRA [Suspect]
     Indication: ERECTILE DYSFUNCTION
  5. LIPITOR [Concomitant]
     Indication: HIGH CHOLESTEROL
  6. NIASPAN [Concomitant]
     Indication: HIGH CHOLESTEROL
  7. MULTIVITAMINS [Concomitant]
  8. BABY ASPIRIN [Concomitant]

REACTIONS (1)
  - Drug ineffective [Unknown]
